FAERS Safety Report 17528454 (Version 3)
Quarter: 2020Q2

REPORT INFORMATION
  Report Type: Spontaneous
  Country: PT (occurrence: PT)
  Receive Date: 20200312
  Receipt Date: 20200413
  Transmission Date: 20200713
  Serious: Yes (Other)
  Sender: FDA-Public Use
  Company Number: PT-AUROBINDO-AUR-APL-2020-012084

PATIENT
  Age: 47 Year
  Sex: Female

DRUGS (4)
  1. NIFEDIPINE 30MG [Suspect]
     Active Substance: NIFEDIPINE
     Indication: PRODUCT USED FOR UNKNOWN INDICATION
     Dosage: 30 MILLIGRAM, ONCE A DAY
     Route: 065
  2. ISOSORBIDE. [Suspect]
     Active Substance: ISOSORBIDE
     Indication: PRODUCT USED FOR UNKNOWN INDICATION
     Dosage: 20 MILLIGRAM, TWO TIMES A DAY
     Route: 065
  3. CARVEDILOL  6.25 MG [Suspect]
     Active Substance: CARVEDILOL
     Indication: PRODUCT USED FOR UNKNOWN INDICATION
     Dosage: 25 MILLIGRAM, DAILY
     Route: 065
  4. CARVEDILOL  6.25 MG [Suspect]
     Active Substance: CARVEDILOL
     Dosage: 6.25 MILLIGRAM, TWO TIMES A DAY
     Route: 065

REACTIONS (4)
  - Renal hypoplasia [Unknown]
  - Nephrectomy [Unknown]
  - Renal artery stenosis [Unknown]
  - Drug ineffective [Unknown]
